FAERS Safety Report 7914160-9 (Version None)
Quarter: 2011Q4

REPORT INFORMATION
  Report Type: 
  Country: None (occurrence: None)
  Receive Date: 20111115
  Receipt Date: 20111115
  Transmission Date: 20120403
  Serious: No
  Sender: FDA-Public Use
  Company Number: None

PATIENT
  Sex: Male
  Weight: 79.378 kg

DRUGS (1)
  1. SPIRIVA [Suspect]
     Indication: CHRONIC OBSTRUCTIVE PULMONARY DISEASE
     Dosage: 8 MCG
     Route: 055
     Dates: start: 20111021, end: 20111027

REACTIONS (6)
  - PHARYNGEAL OEDEMA [None]
  - SWOLLEN TONGUE [None]
  - DYSPEPSIA [None]
  - LIP SWELLING [None]
  - URTICARIA [None]
  - OROPHARYNGEAL PAIN [None]
